FAERS Safety Report 12317469 (Version 1)
Quarter: 2016Q2

REPORT INFORMATION
  Report Type: Spontaneous
  Country: US (occurrence: US)
  Receive Date: 20160429
  Receipt Date: 20160429
  Transmission Date: 20160815
  Serious: No
  Sender: FDA-Public Use
  Company Number: US-PFIZER INC-2016228374

PATIENT
  Age: 41 Year
  Sex: Female
  Weight: 56.7 kg

DRUGS (3)
  1. ZITHROMAX [Suspect]
     Active Substance: AZITHROMYCIN DIHYDRATE
     Indication: ABORTION
     Dosage: UNK, 1X/DAY
     Route: 048
     Dates: start: 201409
  2. PROBIOTICS [Concomitant]
     Active Substance: PROBIOTICS NOS
     Indication: CLOSTRIDIUM DIFFICILE COLITIS
     Dosage: UNK, DAILY
     Route: 048
     Dates: start: 201501
  3. FLAGYL [Suspect]
     Active Substance: METRONIDAZOLE\METRONIDAZOLE HYDROCHLORIDE
     Indication: CLOSTRIDIUM DIFFICILE COLITIS
     Dosage: UNK, 1X/DAY
     Route: 048
     Dates: start: 201501

REACTIONS (13)
  - Dizziness [Recovering/Resolving]
  - Fatigue [Not Recovered/Not Resolved]
  - Urine output decreased [Not Recovered/Not Resolved]
  - Incorrect dose administered [Unknown]
  - Weight decreased [Unknown]
  - Arthralgia [Not Recovered/Not Resolved]
  - Abdominal distension [Not Recovered/Not Resolved]
  - Lactose intolerance [Not Recovered/Not Resolved]
  - Product use issue [Unknown]
  - Abdominal pain [Recovering/Resolving]
  - Night sweats [Not Recovered/Not Resolved]
  - Diarrhoea [Recovered/Resolved]
  - Tinnitus [Not Recovered/Not Resolved]

NARRATIVE: CASE EVENT DATE: 201409
